FAERS Safety Report 6063442-7 (Version None)
Quarter: 2009Q1

REPORT INFORMATION
  Report Type: 
  Country: None (occurrence: None)
  Receive Date: 20090203
  Receipt Date: 20090129
  Transmission Date: 20090719
  Serious: No
  Sender: FDA-Public Use
  Company Number: US-B.I. PHARMACEUTICALS,INC./RIDGEFIELD-2009-BP-00382BP

PATIENT
  Age: 75 Year
  Sex: Female
  Weight: 82 kg

DRUGS (18)
  1. MIRAPEX [Suspect]
     Indication: RESTLESS LEGS SYNDROME
     Dosage: .25MG
     Route: 048
     Dates: start: 20080930
  2. MIRAPEX [Suspect]
     Dosage: .5MG
     Route: 048
  3. MIRAPEX [Suspect]
     Dosage: 1MG
     Route: 048
     Dates: start: 20090109
  4. PERCOCET [Concomitant]
     Indication: ARTHRALGIA
  5. LISINOPRIL [Concomitant]
     Indication: BLOOD PRESSURE INCREASED
     Dosage: 20MG
     Route: 048
     Dates: start: 20081002
  6. REGLAN [Concomitant]
     Indication: DYSPHAGIA
     Dosage: 40MG
     Route: 048
     Dates: start: 20081216
  7. LASIX [Concomitant]
     Indication: BLOOD PRESSURE INCREASED
     Dosage: 40MG
     Route: 048
     Dates: start: 20081002
  8. AMATIZA [Concomitant]
     Indication: ABDOMINAL DISCOMFORT
     Dosage: 48MCG
     Route: 048
     Dates: start: 20080925
  9. EFFEXOR [Concomitant]
     Indication: DEPRESSION
     Dosage: 200MG
     Route: 048
     Dates: start: 20081118
  10. REMERON [Concomitant]
     Indication: DEPRESSION
     Dosage: 7.5MG
     Route: 048
     Dates: start: 20081118
  11. NEURONTIN [Concomitant]
     Dosage: 200MG
     Route: 048
     Dates: start: 20081227
  12. ATIVAN [Concomitant]
     Indication: ANXIETY
     Dosage: 1MG
     Route: 048
     Dates: start: 20081218
  13. SINEQUAN [Concomitant]
     Route: 048
     Dates: start: 20081118
  14. ZYPREXA [Concomitant]
     Dosage: 5MG
     Route: 048
     Dates: start: 20081118
  15. SULAR [Concomitant]
     Dosage: 20MG
     Route: 048
     Dates: start: 20081002
  16. DONNATAL [Concomitant]
     Route: 048
     Dates: start: 20080926
  17. NEXIUM [Concomitant]
     Dosage: 40MG
     Route: 048
     Dates: start: 20080714
  18. MOTRIN [Concomitant]
     Dosage: 1600MG
     Route: 048
     Dates: start: 20060330

REACTIONS (1)
  - DRUG INEFFECTIVE [None]
